FAERS Safety Report 25048847 (Version 1)
Quarter: 2025Q1

REPORT INFORMATION
  Report Type: Spontaneous
  Country: US (occurrence: US)
  Receive Date: 20250307
  Receipt Date: 20250307
  Transmission Date: 20250409
  Serious: No
  Sender: SAMSUNG BIOEPIS
  Company Number: US-SAMSUNG BIOEPIS-SB-2024-15741

PATIENT
  Age: 50 Year
  Sex: Female

DRUGS (3)
  1. HADLIMA [Suspect]
     Active Substance: ADALIMUMAB-BWWD
     Indication: Rheumatoid arthritis
     Route: 058
     Dates: start: 20240515
  2. METHOTREXATE [Concomitant]
     Active Substance: METHOTREXATE
     Indication: Product used for unknown indication
     Route: 065
  3. GANIRELIX [Concomitant]
     Active Substance: GANIRELIX
     Indication: Product used for unknown indication
     Route: 065

REACTIONS (5)
  - Injection site pain [Recovering/Resolving]
  - Accidental exposure to product [Recovering/Resolving]
  - Exposure via skin contact [Recovering/Resolving]
  - Injection site bruising [Recovering/Resolving]
  - Liquid product physical issue [Recovering/Resolving]

NARRATIVE: CASE EVENT DATE: 20240515
